FAERS Safety Report 4851269-0 (Version None)
Quarter: 2005Q4

REPORT INFORMATION
  Report Type: 
  Country: None (occurrence: None)
  Receive Date: 20051208
  Receipt Date: 20051128
  Transmission Date: 20060501
  Serious: Yes (Hospitalization)
  Sender: FDA-Public Use
  Company Number: TPA2005A01549

PATIENT
  Age: 65 Year
  Sex: Male
  Weight: 107.0489 kg

DRUGS (9)
  1. ACTOS [Suspect]
     Dosage: 30 MG, PER ORAL
     Route: 048
  2. BYETTA [Suspect]
     Indication: DIABETES MELLITUS
     Dosage: 5 MCG, 2 IN 1 D, SUBCUTANEOUS
     Route: 058
     Dates: start: 20050920, end: 20050924
  3. ATENOLOL [Concomitant]
  4. EZETIMIBE (EZETIMIBE) [Concomitant]
  5. SIMVASTATIN [Concomitant]
  6. LISINOPRIL [Concomitant]
  7. GABAPENTIN [Concomitant]
  8. AMARYL [Concomitant]
  9. METFORMIN HCL [Concomitant]

REACTIONS (4)
  - BLOOD GLUCOSE INCREASED [None]
  - DECREASED APPETITE [None]
  - DISORIENTATION [None]
  - HYPOGLYCAEMIA [None]
